FAERS Safety Report 5119715-5 (Version None)
Quarter: 2006Q4

REPORT INFORMATION
  Report Type: 
  Country: None (occurrence: None)
  Receive Date: 20061003
  Receipt Date: 20060925
  Transmission Date: 20070319
  Serious: Yes (Life-Threatening, Hospitalization, Other)
  Sender: FDA-Public Use
  Company Number: FR-JNJFOC-20060105588

PATIENT
  Sex: Female
  Weight: 74 kg

DRUGS (19)
  1. REMICADE [Suspect]
     Route: 042
  2. REMICADE [Suspect]
     Route: 042
  3. REMICADE [Suspect]
     Route: 042
  4. REMICADE [Suspect]
     Route: 042
  5. REMICADE [Suspect]
     Route: 042
  6. REMICADE [Suspect]
     Route: 042
  7. REMICADE [Suspect]
     Indication: CROHN'S DISEASE
     Route: 042
  8. AZATHIOPRINE [Suspect]
     Indication: CROHN'S DISEASE
  9. LEVOTHYROXINE SODIUM [Concomitant]
  10. LEVOTHYROXINE SODIUM [Concomitant]
     Indication: HYPERTHYROIDISM
  11. CORTANCYL [Concomitant]
     Indication: CROHN'S DISEASE
     Route: 065
  12. IDARUBICINE [Concomitant]
     Route: 065
  13. CYTARABINE [Concomitant]
     Route: 065
  14. CYTARABINE [Concomitant]
     Route: 065
  15. CYTARABINE [Concomitant]
     Route: 065
  16. DAUNORUBICIN HCL [Concomitant]
     Route: 065
  17. DAUNORUBICIN HCL [Concomitant]
     Route: 065
  18. ETOPOSIDE [Concomitant]
     Route: 065
  19. LEXOMIL [Concomitant]
     Route: 065

REACTIONS (1)
  - ACUTE MYELOID LEUKAEMIA [None]
